FAERS Safety Report 11283187 (Version 1)
Quarter: 2015Q3

REPORT INFORMATION
  Report Type: Spontaneous
  Country: US (occurrence: None)
  Receive Date: 20150717
  Receipt Date: 20150717
  Transmission Date: 20151125
  Serious: Yes (Hospitalization)
  Sender: FDA-Public Use
  Company Number: None

PATIENT
  Age: 55 Year
  Sex: Female
  Weight: 68.3 kg

DRUGS (3)
  1. HYDROCHLOROTHIAZIDE. [Suspect]
     Active Substance: HYDROCHLOROTHIAZIDE
     Indication: MANIA
     Route: 048
     Dates: start: 20130422, end: 20130504
  2. HYDROCHLOROTHIAZIDE. [Suspect]
     Active Substance: HYDROCHLOROTHIAZIDE
     Indication: BIPOLAR DISORDER
     Route: 048
     Dates: start: 20130422, end: 20130504
  3. HYDROCHLOROTHIAZIDE. [Suspect]
     Active Substance: HYDROCHLOROTHIAZIDE
     Indication: BLOOD PRESSURE MEASUREMENT
     Route: 048
     Dates: start: 20130422, end: 20130504

REACTIONS (5)
  - Hypokalaemia [None]
  - Chest pain [None]
  - Rhabdomyolysis [None]
  - Dehydration [None]
  - Dyspnoea [None]

NARRATIVE: CASE EVENT DATE: 20130504
